FAERS Safety Report 8771061 (Version 1)
Quarter: 2012Q4

REPORT INFORMATION
  Report Type: 
  Country: US (occurrence: US)
  Receive Date: 20120906
  Receipt Date: 20120906
  Transmission Date: 20130627
  Serious: No
  Sender: FDA-Public Use
  Company Number: US-PFIZER INC-2012215164

PATIENT
  Age: 54 Year
  Sex: Male
  Weight: 97.96 kg

DRUGS (3)
  1. VIAGRA [Suspect]
     Indication: ERECTILE DYSFUNCTION
     Dosage: 100 mg, as needed
     Dates: start: 201206
  2. VIAGRA [Suspect]
     Dosage: 100 mg, UNK
     Dates: end: 20120826
  3. LOPRESSOR [Concomitant]
     Indication: HYPERTENSION
     Dosage: 25 mg, UNK

REACTIONS (1)
  - Drug ineffective [Unknown]
